FAERS Safety Report 7411626-5 (Version None)
Quarter: 2011Q2

REPORT INFORMATION
  Report Type: 
  Country: None (occurrence: None)
  Receive Date: 20110413
  Receipt Date: 20110401
  Transmission Date: 20111010
  Serious: Yes (Other)
  Sender: FDA-Public Use
  Company Number: PHHY2011BR27275

PATIENT
  Age: 52 Year
  Sex: Male

DRUGS (2)
  1. COMTAN [Suspect]
     Dosage: 4 DF, DAILY
     Route: 048
     Dates: end: 20110329
  2. COMTAN [Suspect]
     Dosage: 1 DF, QD
     Route: 048

REACTIONS (6)
  - FEELING ABNORMAL [None]
  - ANURIA [None]
  - DRUG INEFFECTIVE [None]
  - INTESTINAL FUNCTIONAL DISORDER [None]
  - PYREXIA [None]
  - MALAISE [None]
